FAERS Safety Report 10301850 (Version 1)
Quarter: 2014Q3

REPORT INFORMATION
  Report Type: Spontaneous
  Country: US (occurrence: None)
  Receive Date: 20140709
  Receipt Date: 20140709
  Transmission Date: 20150326
  Serious: Yes (Other)
  Sender: FDA-Public Use
  Company Number: None

PATIENT
  Age: 74 Year
  Sex: Female
  Weight: 63.5 kg

DRUGS (1)
  1. OLOPATADINE .2 % [Suspect]
     Active Substance: OLOPATADINE
     Indication: MULTIPLE ALLERGIES
     Dosage: 1 DROP EACH DAY ONCE DAILY INTO THE EYE
     Route: 047

REACTIONS (3)
  - Dry eye [None]
  - Diplopia [None]
  - Photophobia [None]

NARRATIVE: CASE EVENT DATE: 20140707
